FAERS Safety Report 4961509-5 (Version None)
Quarter: 2006Q1

REPORT INFORMATION
  Report Type: 
  Country: None (occurrence: None)
  Receive Date: 20060201
  Receipt Date: 20051105
  Transmission Date: 20060701
  Serious: No
  Sender: FDA-Public Use
  Company Number: 2005PV003913

PATIENT
  Age: 63 Year
  Sex: Female
  Weight: 87.9978 kg

DRUGS (2)
  1. BYETTA [Suspect]
     Indication: DIABETES MELLITUS
     Dosage: 5 MCG; BID; SC
     Route: 058
     Dates: start: 20051025
  2. AVANDIA [Concomitant]

REACTIONS (3)
  - EYE PRURITUS [None]
  - EYELID OEDEMA [None]
  - RASH ERYTHEMATOUS [None]
